FAERS Safety Report 21141905 (Version 2)
Quarter: 2022Q3

REPORT INFORMATION
  Report Type: Spontaneous
  Country: GR (occurrence: GR)
  Receive Date: 20220728
  Receipt Date: 20220831
  Transmission Date: 20221027
  Serious: Yes (Other)
  Sender: FDA-Public Use
  Company Number: GR-PFIZER INC-PV202200025880

PATIENT
  Age: 74 Year
  Sex: Female

DRUGS (1)
  1. PAXLOVID [Suspect]
     Active Substance: NIRMATRELVIR\RITONAVIR
     Indication: COVID-19 treatment
     Dosage: 3 DF (PF 07321332 300 MG, RITONAVIR 100 MG), 2X/DAY.
     Route: 048

REACTIONS (4)
  - Condition aggravated [Not Recovered/Not Resolved]
  - Hypothermia [Not Recovered/Not Resolved]
  - Hyperhidrosis [Recovered/Resolved]
  - Dysgeusia [Recovered/Resolved]
